FAERS Safety Report 8984339 (Version 1)
Quarter: 2012Q4

REPORT INFORMATION
  Report Type: 
  Country: US (occurrence: US)
  Receive Date: 20121225
  Receipt Date: 20121225
  Transmission Date: 20130627
  Serious: No
  Sender: FDA-Public Use
  Company Number: US-009507513-1212USA009604

PATIENT
  Age: 24 Year
  Sex: Female
  Weight: 55.78 kg

DRUGS (1)
  1. IMPLANON [Suspect]
     Indication: CONTRACEPTION
     Dosage: UNK
     Route: 059
     Dates: start: 20111206

REACTIONS (6)
  - Dyspepsia [Unknown]
  - Menstruation irregular [Unknown]
  - Menorrhagia [Unknown]
  - Weight increased [Unknown]
  - Fatigue [Unknown]
  - Menstruation normal [Unknown]
